FAERS Safety Report 6433490-3 (Version None)
Quarter: 2009Q4

REPORT INFORMATION
  Report Type: 
  Country: None (occurrence: None)
  Receive Date: 20091106
  Receipt Date: 20091106
  Transmission Date: 20100525
  Serious: No
  Sender: FDA-Public Use
  Company Number: None

PATIENT
  Sex: Female
  Weight: 87.5 kg

DRUGS (1)
  1. RITUXAN [Suspect]
     Indication: JUVENILE ARTHRITIS
     Dosage: 1000  MG ONE TIME ONLY IV
     Route: 042
     Dates: start: 20090930, end: 20090930

REACTIONS (3)
  - RASH ERYTHEMATOUS [None]
  - RASH PAPULAR [None]
  - RASH PRURITIC [None]
